FAERS Safety Report 7158968-9 (Version None)
Quarter: 2010Q4

REPORT INFORMATION
  Report Type: 
  Country: None (occurrence: None)
  Receive Date: 20101214
  Receipt Date: 20101208
  Transmission Date: 20110411
  Serious: Yes (Hospitalization, Other)
  Sender: FDA-Public Use
  Company Number: FR-B.I. PHARMACEUTICALS,INC./RIDGEFIELD-2010-FF-00539FF

PATIENT
  Sex: Female
  Weight: 64 kg

DRUGS (3)
  1. VIRAMUNE [Suspect]
     Indication: HIV INFECTION
     Dosage: 400 MG
     Route: 048
     Dates: start: 20090501
  2. TRUVADA [Concomitant]
     Indication: HIV INFECTION
     Route: 048
     Dates: start: 20080401
  3. VALACYCLOVIR HYDROCHLORIDE [Concomitant]
     Indication: HERPES VIRUS INFECTION
     Route: 048

REACTIONS (2)
  - THREATENED LABOUR [None]
  - VAGINITIS GARDNERELLA [None]
